FAERS Safety Report 6790773-5 (Version None)
Quarter: 2010Q2

REPORT INFORMATION
  Report Type: 
  Country: None (occurrence: None)
  Receive Date: 20100624
  Receipt Date: 20100616
  Transmission Date: 20101027
  Serious: Yes (Other)
  Sender: FDA-Public Use
  Company Number: SE-PFIZER INC-2010075623

PATIENT
  Sex: Male

DRUGS (3)
  1. CAMPTOSAR [Suspect]
     Indication: COLORECTAL CANCER METASTATIC
     Dosage: 500 MG, UNK
     Dates: start: 20100615
  2. IBUMETIN [Concomitant]
     Indication: PYREXIA
     Dosage: 400 MG, 2X/DAY
     Dates: start: 20100501, end: 20100614
  3. ATROPIN [Concomitant]
     Indication: PROPHYLAXIS
     Dosage: UNK
     Dates: start: 20100615, end: 20100615

REACTIONS (2)
  - BODY TEMPERATURE DECREASED [None]
  - HICCUPS [None]
